FAERS Safety Report 9842201 (Version 6)
Quarter: 2015Q2

REPORT INFORMATION
  Report Type: Spontaneous
  Country: US (occurrence: US)
  Receive Date: 20140124
  Receipt Date: 20150601
  Transmission Date: 20150821
  Serious: Yes (Other)
  Sender: FDA-Public Use
  Company Number: US-GLAXOSMITHKLINE-A1057079A

PATIENT
  Sex: Male

DRUGS (5)
  1. TEGRETOL [Concomitant]
     Active Substance: CARBAMAZEPINE
  2. PHENYTOIN. [Concomitant]
     Active Substance: PHENYTOIN
  3. LAMOTRIGINE. [Suspect]
     Active Substance: LAMOTRIGINE
     Indication: EPILEPSY
     Dosage: 100 MG DAILY, INCREASED TO 200 MG DAILY
     Route: 048
  4. LAMICTAL XR [Suspect]
     Active Substance: LAMOTRIGINE
     Indication: EPILEPSY
     Dosage: 200 MG TABLETS, 25 MG AND 50 MG TABLETS TO EQUAL 200 MG (SAMPLES), TOTAL DAILY DOSE OF 200 MG.
     Route: 048
  5. EYE DROPS [Concomitant]
     Active Substance: TETRAHYDROZOLINE HYDROCHLORIDE

REACTIONS (9)
  - Balance disorder [Recovering/Resolving]
  - Limb injury [Unknown]
  - Peripheral swelling [Not Recovered/Not Resolved]
  - Nervousness [Recovering/Resolving]
  - Seizure [Recovering/Resolving]
  - Hyperhidrosis [Recovering/Resolving]
  - Drug ineffective [Unknown]
  - Fall [Unknown]
  - Injury [Unknown]

NARRATIVE: CASE EVENT DATE: 2015
